FAERS Safety Report 9752579 (Version 5)
Quarter: 2014Q2

REPORT INFORMATION
  Report Type: Spontaneous
  Country: US (occurrence: US)
  Receive Date: 20131213
  Receipt Date: 20140421
  Transmission Date: 20141212
  Serious: Yes (Hospitalization, Other)
  Sender: FDA-Public Use
  Company Number: US-JNJFOC-20130415751

PATIENT
  Sex: Male

DRUGS (2)
  1. RISPERDAL [Suspect]
     Indication: BIPOLAR DISORDER
     Route: 048
     Dates: start: 1997, end: 2010
  2. RISPERDAL [Suspect]
     Indication: SCHIZOPHRENIA
     Route: 048
     Dates: start: 1997, end: 2010

REACTIONS (6)
  - Obesity [Unknown]
  - Tardive dyskinesia [Unknown]
  - Suicidal ideation [Unknown]
  - Type 2 diabetes mellitus [Unknown]
  - Gynaecomastia [Unknown]
  - Emotional distress [Unknown]
